FAERS Safety Report 21430260 (Version 2)
Quarter: 2022Q4

REPORT INFORMATION
  Report Type: Report from Study
  Country: US (occurrence: US)
  Receive Date: 20221009
  Receipt Date: 20221011
  Transmission Date: 20230113
  Serious: No
  Sender: FDA-Public Use
  Company Number: US-ABBVIE-4142458

PATIENT
  Sex: Male

DRUGS (3)
  1. SKYRIZI [Suspect]
     Active Substance: RISANKIZUMAB-RZAA
     Indication: Psoriasis
     Route: 058
  2. MODERNA COVID-19 VACCINE [Concomitant]
     Active Substance: ELASOMERAN
     Indication: COVID-19 immunisation
     Dosage: 1ST DOSE, FREQUENCY: 1 IN 1 ONCE
     Route: 030
     Dates: start: 20210602, end: 20210602
  3. MODERNA COVID-19 VACCINE [Concomitant]
     Active Substance: ELASOMERAN
     Indication: COVID-19 immunisation
     Dosage: 2ND DOSE, FREQUENCY: 1 IN 1 ONCE
     Route: 030
     Dates: start: 20210705, end: 20210705

REACTIONS (2)
  - Needle issue [Recovered/Resolved]
  - Psoriasis [Not Recovered/Not Resolved]
